FAERS Safety Report 10797731 (Version 3)
Quarter: 2015Q2

REPORT INFORMATION
  Report Type: Spontaneous
  Country: US (occurrence: US)
  Receive Date: 20150216
  Receipt Date: 20150424
  Transmission Date: 20150821
  Serious: Yes (Hospitalization)
  Sender: FDA-Public Use
  Company Number: US-PFIZER INC-2015051994

PATIENT
  Age: 86 Year
  Sex: Male
  Weight: 104 kg

DRUGS (10)
  1. SEACAL /00751501/ [Concomitant]
     Indication: BENIGN NEOPLASM
     Dosage: UNK
  2. WARFARIN [Concomitant]
     Active Substance: WARFARIN
     Dosage: 5MG A DAY AS DIRECTED. CUT DOWN 2.5MG ON WED.
  3. TAMSULOSIN [Concomitant]
     Active Substance: TAMSULOSIN
     Dosage: ONE TABLET, DAILY
  4. OSTEO BI-FLEX [Concomitant]
     Active Substance: CHONDROITIN SULFATE A\GLUCOSAMINE
     Indication: BACK PAIN
     Dosage: UNK
  5. NIACIN. [Concomitant]
     Active Substance: NIACIN
     Dosage: ONE TABLET
  6. METOPROLOL [Concomitant]
     Active Substance: METOPROLOL
     Dosage: 25 MG, 2X/DAY
  7. SIMVASTATIN. [Concomitant]
     Active Substance: SIMVASTATIN
     Dosage: 40 MG, DAILY
  8. FINASTERIDE. [Concomitant]
     Active Substance: FINASTERIDE
     Dosage: 5 MG, DAILY
  9. PRILOSEC [Concomitant]
     Active Substance: OMEPRAZOLE MAGNESIUM
     Dosage: ONE TABLET, DAILY
  10. TIKOSYN [Suspect]
     Active Substance: DOFETILIDE
     Indication: CARDIAC DISORDER
     Dosage: 500 ?G, 2X/DAY
     Route: 048

REACTIONS (3)
  - Gait disturbance [Unknown]
  - Arthralgia [Unknown]
  - Dry mouth [Not Recovered/Not Resolved]

NARRATIVE: CASE EVENT DATE: 2013
